FAERS Safety Report 19717816 (Version 3)
Quarter: 2022Q2

REPORT INFORMATION
  Report Type: Spontaneous
  Country: CA (occurrence: None)
  Receive Date: 20210818
  Receipt Date: 20220427
  Transmission Date: 20220721
  Serious: Yes (Hospitalization)
  Sender: FDA-Public Use
  Company Number: CA-ROCHE-2890358

PATIENT
  Age: 81 Year
  Sex: Male

DRUGS (35)
  1. RITUXIMAB [Suspect]
     Active Substance: RITUXIMAB
     Indication: Rheumatoid arthritis
     Route: 041
  2. RITUXIMAB [Suspect]
     Active Substance: RITUXIMAB
     Dosage: CYCLICAL 1 DAY
     Route: 041
  3. ACTEMRA [Suspect]
     Active Substance: TOCILIZUMAB
     Indication: Rheumatoid arthritis
     Dosage: 1 DAY
     Route: 042
  4. CANDESARTAN [Suspect]
     Active Substance: CANDESARTAN
     Indication: Product used for unknown indication
     Route: 048
  5. FUROSEMIDE [Suspect]
     Active Substance: FUROSEMIDE
     Indication: Product used for unknown indication
     Route: 065
  6. NITROFURANTOIN [Suspect]
     Active Substance: NITROFURANTOIN
     Indication: Product used for unknown indication
     Route: 065
  7. BENDAMUSTINE HYDROCHLORIDE [Suspect]
     Active Substance: BENDAMUSTINE HYDROCHLORIDE
     Indication: Rheumatoid arthritis
     Route: 065
  8. BENDAMUSTINE HYDROCHLORIDE [Suspect]
     Active Substance: BENDAMUSTINE HYDROCHLORIDE
     Route: 041
  9. CYTARABINE [Suspect]
     Active Substance: CYTARABINE
     Indication: Rheumatoid arthritis
     Route: 065
  10. CYTARABINE [Suspect]
     Active Substance: CYTARABINE
     Route: 041
  11. ACETAMINOPHEN [Concomitant]
     Active Substance: ACETAMINOPHEN
     Indication: Premedication
     Route: 048
  12. APIXABAN [Concomitant]
     Active Substance: APIXABAN
     Route: 065
  13. BETAHISTINE HYDROCHLORIDE [Concomitant]
     Active Substance: BETAHISTINE HYDROCHLORIDE
     Route: 065
  14. BENADRYL [Concomitant]
     Active Substance: DIPHENHYDRAMINE HYDROCHLORIDE
     Indication: Premedication
     Route: 048
  15. BICALUTAMIDE [Concomitant]
     Active Substance: BICALUTAMIDE
     Route: 065
  16. BISOPROLOL [Concomitant]
     Active Substance: BISOPROLOL
     Route: 065
  17. BRILINTA [Concomitant]
     Active Substance: TICAGRELOR
     Route: 065
  18. CLOPIDOGREL BISULFATE [Concomitant]
     Active Substance: CLOPIDOGREL BISULFATE
     Route: 065
  19. EFUDEX [Concomitant]
     Active Substance: FLUOROURACIL
     Route: 065
  20. HYDROXYCHLOROQUINE [Concomitant]
     Active Substance: HYDROXYCHLOROQUINE
     Route: 065
  21. HYDROXYCHLOROQUINE SULFATE [Concomitant]
     Active Substance: HYDROXYCHLOROQUINE SULFATE
     Route: 065
  22. KETOPROFEN [Concomitant]
     Active Substance: KETOPROFEN
     Route: 065
  23. METOPROLOL [Concomitant]
     Active Substance: METOPROLOL
     Route: 065
  24. METOPROLOL [Concomitant]
     Active Substance: METOPROLOL
     Route: 065
  25. NITROGLYCERIN [Concomitant]
     Active Substance: NITROGLYCERIN
     Route: 065
  26. PANTOPRAZOLE MAGNESIUM [Concomitant]
     Active Substance: PANTOPRAZOLE MAGNESIUM
     Route: 065
  27. FERRIC POLYSACCHARIDE COMPLEX [Concomitant]
     Active Substance: FERRIC POLYSACCHARIDE COMPLEX
     Route: 065
  28. POTASSIUM [Concomitant]
     Active Substance: POTASSIUM
     Route: 065
  29. RABEPRAZOLE [Concomitant]
     Active Substance: RABEPRAZOLE
     Route: 065
  30. ROSUVASTATIN [Concomitant]
     Active Substance: ROSUVASTATIN
     Route: 065
  31. ROSUVASTATIN CALCIUM [Concomitant]
     Active Substance: ROSUVASTATIN CALCIUM
     Route: 065
  32. SULFASALAZINE [Concomitant]
     Active Substance: SULFASALAZINE
     Route: 065
  33. ZOLADEX [Concomitant]
     Active Substance: GOSERELIN ACETATE
     Route: 065
  34. ASPIRIN [Concomitant]
     Active Substance: ASPIRIN
     Indication: Premedication
     Route: 048
  35. CLOPIDOGREL [Concomitant]
     Active Substance: CLOPIDOGREL BISULFATE
     Route: 065

REACTIONS (7)
  - Atrial fibrillation [Unknown]
  - Blood urine present [Unknown]
  - Drug hypersensitivity [Unknown]
  - Fluid retention [Unknown]
  - Heart rate increased [Unknown]
  - Hypotension [Unknown]
  - Myocardial infarction [Unknown]
